FAERS Safety Report 24528311 (Version 1)
Quarter: 2024Q4

REPORT INFORMATION
  Report Type: Spontaneous
  Country: US (occurrence: None)
  Receive Date: 20241018
  Receipt Date: 20241018
  Transmission Date: 20250115
  Serious: Yes (Hospitalization)
  Sender: Public
  Company Number: None

PATIENT
  Age: 84 Year
  Sex: Male
  Weight: 85 kg

DRUGS (1)
  1. RIVAROXABAN [Suspect]
     Active Substance: RIVAROXABAN
     Indication: Atrial fibrillation
     Dosage: FREQUENCY : DAILY;?
     Route: 048
     Dates: start: 20230613, end: 20240425

REACTIONS (6)
  - Blood loss anaemia [None]
  - Gastrointestinal haemorrhage [None]
  - Angina pectoris [None]
  - Therapy interrupted [None]
  - Mass [None]
  - Gastrointestinal disorder [None]

NARRATIVE: CASE EVENT DATE: 20240425
